FAERS Safety Report 9617325 (Version 2)
Quarter: 2013Q4

REPORT INFORMATION
  Report Type: Spontaneous
  Country: MX (occurrence: MX)
  Receive Date: 20131011
  Receipt Date: 20131120
  Transmission Date: 20140711
  Serious: Yes (Hospitalization)
  Sender: FDA-Public Use
  Company Number: MX-BRISTOL-MYERS SQUIBB COMPANY-19520352

PATIENT
  Sex: Female

DRUGS (1)
  1. ELICUIS [Suspect]

REACTIONS (1)
  - Embolic stroke [Unknown]
